FAERS Safety Report 5421872-8 (Version None)
Quarter: 2007Q3

REPORT INFORMATION
  Report Type: 
  Country: None (occurrence: None)
  Receive Date: 20070817
  Receipt Date: 20070726
  Transmission Date: 20080115
  Serious: Yes (Other)
  Sender: FDA-Public Use
  Company Number: 2007RR-08839

PATIENT
  Age: 52 Year
  Sex: Male

DRUGS (1)
  1. DOXYCYCLINE [Suspect]

REACTIONS (4)
  - DRUG INEFFECTIVE [None]
  - ENCEPHALITIS [None]
  - RENAL IMPAIRMENT [None]
  - VASCULITIS [None]
